FAERS Safety Report 9162614 (Version 1)
Quarter: 2013Q1

REPORT INFORMATION
  Report Type: Spontaneous
  Country: FR (occurrence: FR)
  Receive Date: 20130314
  Receipt Date: 20130314
  Transmission Date: 20140127
  Serious: Yes (Hospitalization)
  Sender: FDA-Public Use
  Company Number: FR-ABBOTT-09P-056-0575817-00

PATIENT
  Age: 57 None
  Sex: Female

DRUGS (9)
  1. LIPANTHYL [Suspect]
     Indication: DYSLIPIDAEMIA
     Route: 048
     Dates: start: 2004, end: 20090109
  2. LIPANTHYL [Suspect]
     Dates: start: 20090110
  3. UTROGESTAN [Suspect]
     Indication: PROGESTERONE DECREASED
     Route: 048
     Dates: start: 2002, end: 20090121
  4. PHYSIOTENS [Suspect]
     Indication: HYPERTENSION
     Route: 048
     Dates: start: 20090106, end: 20090110
  5. ESTREVA [Suspect]
     Indication: OESTROGEN DEFICIENCY
     Route: 061
     Dates: start: 2002, end: 20090120
  6. PRETERAX [Suspect]
     Indication: HYPERTENSION
     Dosage: 2MG/0.625MG
     Route: 048
     Dates: start: 20081219, end: 20090106
  7. MEDIATOR [Suspect]
     Indication: DIABETES MELLITUS
     Route: 048
     Dates: start: 2004, end: 20090110
  8. MICARDIS [Suspect]
     Indication: HYPERTENSION
     Route: 048
     Dates: start: 20090110, end: 20090113
  9. STAGID [Suspect]
     Indication: DIABETES MELLITUS
     Route: 048
     Dates: start: 20090110, end: 20090113

REACTIONS (17)
  - Rash scarlatiniform [Recovered/Resolved]
  - Anxiety [Unknown]
  - Rash scarlatiniform [Recovered/Resolved]
  - Pyrexia [Unknown]
  - Hypertension [Unknown]
  - Hypertension [Unknown]
  - Arthralgia [Not Recovered/Not Resolved]
  - Chills [Not Recovered/Not Resolved]
  - Anxiety [Unknown]
  - Asthenia [Not Recovered/Not Resolved]
  - Diabetes mellitus inadequate control [Unknown]
  - Dyslipidaemia [Unknown]
  - Drug ineffective [Unknown]
  - Drug ineffective [Unknown]
  - Anxiety [Unknown]
  - Agitation [Unknown]
  - Blood pressure increased [Not Recovered/Not Resolved]
